FAERS Safety Report 20879690 (Version 3)
Quarter: 2023Q4

REPORT INFORMATION
  Report Type: Report from Study
  Country: PH (occurrence: PH)
  Receive Date: 20220526
  Receipt Date: 20231129
  Transmission Date: 20240110
  Serious: Yes (Death)
  Sender: FDA-Public Use
  Company Number: PH-NOVARTISPH-NVSC2022PH121640

PATIENT
  Age: 68 Year
  Sex: Female

DRUGS (5)
  1. RIBOCICLIB [Suspect]
     Active Substance: RIBOCICLIB
     Indication: Product used for unknown indication
     Dosage: 200 MG, OTHER (TAKE 3 TABLETS ONCE A DAY FROM MAY 10-30)
     Route: 048
  2. FULVESTRANT [Suspect]
     Active Substance: FULVESTRANT
     Indication: Product used for unknown indication
     Dosage: 500 MG, OTHER (FOR INTRAMUSCULAR INJECTION MAY 7 AND JUN 7, 2021, 500 MG/BOX)
     Route: 030
  3. FILGRASTIM [Suspect]
     Active Substance: FILGRASTIM
     Indication: Product used for unknown indication
     Dosage: 300 UG, OTHER (VIAL, FOR SUBCUTANEOUS INJECTION ON MAY 12,16,20,24,28, AND JUN 2)
     Route: 058
  4. VITAMIN D3 [Suspect]
     Active Substance: CHOLECALCIFEROL
     Indication: Product used for unknown indication
     Dosage: 800 IU, QD (GEL CAPSULES)
     Route: 048
  5. XGEVA [Concomitant]
     Active Substance: DENOSUMAB
     Indication: Product used for unknown indication
     Dosage: 120 MG/VIAL (SUBCUTANEOUS INJECTION)
     Route: 058
     Dates: start: 20210506

REACTIONS (1)
  - Death [Fatal]
